FAERS Safety Report 4719403-0 (Version None)
Quarter: 2005Q3

REPORT INFORMATION
  Report Type: 
  Country: None (occurrence: None)
  Receive Date: 20050721
  Receipt Date: 20040803
  Transmission Date: 20060218
  Serious: No
  Sender: FDA-Public Use
  Company Number: US-BRISTOL-MYERS SQUIBB COMPANY-12659272

PATIENT
  Sex: Female

DRUGS (1)
  1. ESTRACE [Suspect]
     Indication: UTERINE DISORDER
     Route: 048
     Dates: start: 20040724

REACTIONS (2)
  - BLISTER [None]
  - FUNGAL INFECTION [None]
